FAERS Safety Report 12548683 (Version 1)
Quarter: 2016Q3

REPORT INFORMATION
  Report Type: Spontaneous
  Country: US (occurrence: None)
  Receive Date: 20160711
  Receipt Date: 20160711
  Transmission Date: 20161109
  Serious: No
  Sender: FDA-Public Use
  Company Number: None

PATIENT
  Age: 39 Year
  Sex: Male
  Weight: 74.39 kg

DRUGS (5)
  1. TURMERIC [Concomitant]
     Active Substance: TURMERIC
  2. MULTI VIT [Concomitant]
  3. FISH OIL [Concomitant]
     Active Substance: FISH OIL
  4. AMITRIPTYLINE, 10 MG MYLAN [Suspect]
     Active Substance: AMITRIPTYLINE
     Indication: NEURALGIA
     Dosage: 15 TABLET(S) AT BEDTIME TAKEN BY MOUTH
     Route: 048
     Dates: start: 20160601, end: 20160709
  5. COPPER [Concomitant]
     Active Substance: COPPER

REACTIONS (5)
  - Muscle tightness [None]
  - Gingival erythema [None]
  - Dysphagia [None]
  - Gingival bleeding [None]
  - Gingival disorder [None]

NARRATIVE: CASE EVENT DATE: 20160710
